FAERS Safety Report 11168702 (Version 1)
Quarter: 2015Q2

REPORT INFORMATION
  Report Type: Spontaneous
  Country: AU (occurrence: AU)
  Receive Date: 20150605
  Receipt Date: 20150605
  Transmission Date: 20150821
  Serious: No
  Sender: FDA-Public Use
  Company Number: AU-B.I. PHARMACEUTICALS,INC./RIDGEFIELD-2015-BI-29600AU

PATIENT
  Age: 7 Decade
  Sex: Female

DRUGS (1)
  1. TRAJENTAMET [Suspect]
     Active Substance: LINAGLIPTIN\METFORMIN HYDROCHLORIDE
     Indication: PRODUCT USED FOR UNKNOWN INDICATION
     Dosage: DOSE PER APPLICATION: 1000/2.5 MG
     Route: 065

REACTIONS (1)
  - Pancreatitis [Recovered/Resolved]
